FAERS Safety Report 18294646 (Version 2)
Quarter: 2020Q4

REPORT INFORMATION
  Report Type: Spontaneous
  Country: US (occurrence: US)
  Receive Date: 20200922
  Receipt Date: 20201014
  Transmission Date: 20210113
  Serious: Yes (Other)
  Sender: FDA-Public Use
  Company Number: US-BAYER-2020-200567

PATIENT
  Age: 28 Year
  Sex: Female
  Weight: 69.39 kg

DRUGS (1)
  1. KYLEENA [Suspect]
     Active Substance: LEVONORGESTREL
     Indication: CONTRACEPTION
     Dosage: 17.5?G PER DAY, CONTINUOUSLY
     Route: 015
     Dates: start: 20180917, end: 20200820

REACTIONS (3)
  - Embedded device [None]
  - Abdominal pain [None]
  - Menorrhagia [None]

NARRATIVE: CASE EVENT DATE: 20200820
